FAERS Safety Report 4386690-0 (Version None)
Quarter: 2004Q2

REPORT INFORMATION
  Report Type: 
  Country: None (occurrence: None)
  Receive Date: 20040607
  Receipt Date: 20040109
  Transmission Date: 20050107
  Serious: Yes (Other)
  Sender: FDA-Public Use
  Company Number: 355534

PATIENT

DRUGS (2)
  1. ROACCUTANE (ISOTRETINOIN) 30 MG [Suspect]
     Indication: ACNE
     Dosage: 30 MG DAILY
     Dates: start: 20030915, end: 20031015
  2. DIANETTE (CYPROTERONE ACETATE/ETHINYL ESTRADIOL) [Concomitant]

REACTIONS (2)
  - NO ADVERSE EFFECT [None]
  - PREGNANCY [None]
